FAERS Safety Report 19782601 (Version 1)
Quarter: 2021Q3

REPORT INFORMATION
  Report Type: Report from Study
  Country: US (occurrence: US)
  Receive Date: 20210902
  Receipt Date: 20210902
  Transmission Date: 20211014
  Serious: Yes (Other)
  Sender: FDA-Public Use
  Company Number: US-BRISTOL-MYERS SQUIBB COMPANY-BMS-2021-085617

PATIENT
  Age: 66 Year
  Sex: Male
  Weight: 245 kg

DRUGS (2)
  1. APIXABAN [Suspect]
     Active Substance: APIXABAN
     Indication: DEEP VEIN THROMBOSIS
     Dosage: 5 MILLIGRAM, BID
     Route: 048
     Dates: start: 2019
  2. APIXABAN [Suspect]
     Active Substance: APIXABAN
     Indication: PULMONARY EMBOLISM

REACTIONS (4)
  - Limb discomfort [Unknown]
  - Gait disturbance [Unknown]
  - Arthropathy [Unknown]
  - Muscle spasms [Unknown]

NARRATIVE: CASE EVENT DATE: 202107
